FAERS Safety Report 4488673-9 (Version None)
Quarter: 2004Q4

REPORT INFORMATION
  Report Type: 
  Country: None (occurrence: None)
  Receive Date: 20041026
  Receipt Date: 20041012
  Transmission Date: 20050328
  Serious: Yes (Hospitalization)
  Sender: FDA-Public Use
  Company Number: USA040977135

PATIENT
  Age: 49 Year
  Sex: Female
  Weight: 52 kg

DRUGS (5)
  1. CYMBALTA [Suspect]
     Indication: DEPRESSION
     Dosage: 30 U DAY
     Dates: start: 20040818, end: 20040821
  2. ELAVIL [Concomitant]
  3. DAYPRO [Concomitant]
  4. FLEXERIL [Concomitant]
  5. LORTAB [Concomitant]

REACTIONS (16)
  - ALANINE AMINOTRANSFERASE INCREASED [None]
  - ASPARTATE AMINOTRANSFERASE INCREASED [None]
  - BLOOD ALKALINE PHOSPHATASE INCREASED [None]
  - BLOOD BILIRUBIN INCREASED [None]
  - BLOOD GLUCOSE INCREASED [None]
  - BLOOD UREA INCREASED [None]
  - DEHYDRATION [None]
  - DIARRHOEA [None]
  - GASTROENTERITIS VIRAL [None]
  - HAEMATOCRIT DECREASED [None]
  - HAEMOGLOBIN DECREASED [None]
  - HEPATIC ENZYME INCREASED [None]
  - NAUSEA [None]
  - PROTEIN TOTAL INCREASED [None]
  - SELF-MEDICATION [None]
  - VOMITING [None]
